FAERS Safety Report 10331966 (Version 3)
Quarter: 2014Q4

REPORT INFORMATION
  Report Type: Spontaneous
  Country: IT (occurrence: IT)
  Receive Date: 20140722
  Receipt Date: 20141114
  Transmission Date: 20150528
  Serious: Yes (Other)
  Sender: FDA-Public Use
  Company Number: IT-PFIZER INC-2014200146

PATIENT
  Age: 83 Year
  Sex: Male

DRUGS (6)
  1. LYRICA [Suspect]
     Active Substance: PREGABALIN
     Indication: PAIN IN EXTREMITY
     Dosage: 75 MG, 1X/DAY
     Route: 048
     Dates: start: 20140626, end: 20140626
  2. CO-EFFERALGAN [Concomitant]
     Active Substance: ACETAMINOPHEN\CODEINE PHOSPHATE
     Dosage: 500 MG, UNK
  3. BICALUTAMID [Concomitant]
     Active Substance: BICALUTAMIDE
     Dosage: 150 MG, UNK
     Route: 048
  4. TICLOPIDINE [Concomitant]
     Active Substance: TICLOPIDINE
     Dosage: 250 MG, UNK
  5. SIMVASTATIN. [Concomitant]
     Active Substance: SIMVASTATIN
     Dosage: 20 MG, UNK
     Route: 048
  6. UROREC [Concomitant]
     Active Substance: SILODOSIN
     Dosage: 8 MG, UNK

REACTIONS (3)
  - Dysphagia [Recovered/Resolved]
  - Dysphonia [Recovered/Resolved]
  - Dyspnoea [Recovered/Resolved]

NARRATIVE: CASE EVENT DATE: 20140626
